FAERS Safety Report 10991671 (Version 1)
Quarter: 2015Q2

REPORT INFORMATION
  Report Type: Spontaneous
  Country: FR (occurrence: FR)
  Receive Date: 20150406
  Receipt Date: 20150406
  Transmission Date: 20150821
  Serious: Yes (Other)
  Sender: FDA-Public Use
  Company Number: FR-JNJFOC-20150401794

PATIENT

DRUGS (2)
  1. INFLIXIMAB, RECOMBINANT [Suspect]
     Active Substance: INFLIXIMAB
     Indication: HIDRADENITIS
     Dosage: WEEKS 0?2?6 THEN EVERY 8 WEEKS
     Route: 042
  2. INFLIXIMAB, RECOMBINANT [Suspect]
     Active Substance: INFLIXIMAB
     Indication: HIDRADENITIS
     Dosage: 6 OR 7 MG/KG EVERY 5, 6 OR 7 WEEKS
     Route: 042

REACTIONS (4)
  - Infection [Unknown]
  - Plastic surgery [Unknown]
  - Product use issue [Unknown]
  - Hepatocellular injury [Unknown]
